FAERS Safety Report 13004681 (Version 2)
Quarter: 2016Q4

REPORT INFORMATION
  Report Type: Report from Study
  Country: NL (occurrence: NL)
  Receive Date: 20161207
  Receipt Date: 20161224
  Transmission Date: 20170207
  Serious: Yes (Death, Hospitalization, Other)
  Sender: FDA-Public Use
  Company Number: NL-AMGEN-NLDSL2016171810

PATIENT
  Age: 77 Year
  Sex: Male

DRUGS (1)
  1. ARANESP [Suspect]
     Active Substance: DARBEPOETIN ALFA
     Indication: HYPERPARATHYROIDISM SECONDARY
     Dosage: 60 MUG (200 MCG/ML, 0.3 ML), Q2WK
     Route: 058

REACTIONS (4)
  - Death [Fatal]
  - Hip fracture [Recovering/Resolving]
  - Pneumonia [Recovering/Resolving]
  - Renal impairment [Recovering/Resolving]

NARRATIVE: CASE EVENT DATE: 201611
